FAERS Safety Report 22085728 (Version 2)
Quarter: 2024Q2

REPORT INFORMATION
  Report Type: Spontaneous
  Country: US (occurrence: US)
  Receive Date: 20230310
  Receipt Date: 20240607
  Transmission Date: 20240716
  Serious: Yes (Hospitalization, Other)
  Sender: FDA-Public Use
  Company Number: US-SA-SAC20230309000215

PATIENT
  Age: 62 Year
  Sex: Male
  Weight: 75.74 kg

DRUGS (27)
  1. FABRAZYME [Suspect]
     Active Substance: AGALSIDASE BETA
     Indication: Fabry^s disease
     Dosage: 85 MG, QW
     Route: 042
     Dates: start: 20080212
  2. NORVASC [Concomitant]
     Active Substance: AMLODIPINE BESYLATE
  3. ATIVAN [Concomitant]
     Active Substance: LORAZEPAM
     Dosage: UNK
  4. NEURONTIN [Concomitant]
     Active Substance: GABAPENTIN
  5. COZAAR [Concomitant]
     Active Substance: LOSARTAN POTASSIUM
  6. PREDNISONE [Concomitant]
     Active Substance: PREDNISONE
  7. LIVALO [Concomitant]
     Active Substance: PITAVASTATIN CALCIUM
  8. PROGRAF [Concomitant]
     Active Substance: TACROLIMUS
  9. TEGRETOL [Concomitant]
     Active Substance: CARBAMAZEPINE
  10. ASPIRIN [Concomitant]
     Active Substance: ASPIRIN
  11. NEXIUM I.V. [Concomitant]
     Active Substance: ESOMEPRAZOLE SODIUM
  12. VITAMIN D3 [Concomitant]
     Active Substance: CHOLECALCIFEROL
  13. PROAIR HFA [Concomitant]
     Active Substance: ALBUTEROL SULFATE
  14. AVODART [Concomitant]
     Active Substance: DUTASTERIDE
  15. COLACE [Concomitant]
     Active Substance: DOCUSATE SODIUM
  16. MORNIFLUMATE [Concomitant]
     Active Substance: MORNIFLUMATE
  17. MYFORTIC [Concomitant]
     Active Substance: MYCOPHENOLATE SODIUM
  18. LOPRESSOR [Concomitant]
     Active Substance: METOPROLOL TARTRATE
  19. XYZAL [Concomitant]
     Active Substance: LEVOCETIRIZINE DIHYDROCHLORIDE
  20. CARAFATE [Concomitant]
     Active Substance: SUCRALFATE
  21. TORSEMIDE [Concomitant]
     Active Substance: TORSEMIDE
  22. DURAGESIC [Concomitant]
     Active Substance: FENTANYL
  23. ADVAIR HFA [Concomitant]
     Active Substance: FLUTICASONE PROPIONATE\SALMETEROL XINAFOATE
  24. ACETAMINOPHEN\OXYCODONE HYDROCHLORIDE\OXYCODONE TEREPHTHALATE [Concomitant]
     Active Substance: ACETAMINOPHEN\OXYCODONE HYDROCHLORIDE\OXYCODONE TEREPHTHALATE
  25. SODIUM CHLORIDE [Concomitant]
     Active Substance: SODIUM CHLORIDE
  26. EPINEPHRINE [Concomitant]
     Active Substance: EPINEPHRINE
  27. STERILISED WATER FOR INJECTION [Concomitant]

REACTIONS (3)
  - Pneumonia [Unknown]
  - Herpes zoster [Unknown]
  - Inappropriate schedule of product administration [Unknown]

NARRATIVE: CASE EVENT DATE: 20080212
